FAERS Safety Report 6069994-5 (Version None)
Quarter: 2009Q1

REPORT INFORMATION
  Report Type: 
  Country: None (occurrence: None)
  Receive Date: 20090209
  Receipt Date: 20090127
  Transmission Date: 20090719
  Serious: Yes (Other)
  Sender: FDA-Public Use
  Company Number: PHEH2008US01251

PATIENT
  Sex: Female

DRUGS (8)
  1. RECLAST [Suspect]
     Indication: OSTEOPOROSIS POSTMENOPAUSAL
     Dosage: 5 UNK, ONCE/SINGLE
     Dates: start: 20080101, end: 20080101
  2. VERAPAMIL [Concomitant]
  3. MAXZIDE [Concomitant]
     Dosage: 75/50 QD
  4. APAP TAB [Concomitant]
  5. CLONIDINE HCL [Concomitant]
     Dosage: 0.1 MG, QD
     Route: 048
  6. ATENOLOL [Concomitant]
     Dosage: 25 MG, QD
     Route: 048
  7. VYTORIN [Concomitant]
  8. PREDNISONE [Concomitant]

REACTIONS (27)
  - ABASIA [None]
  - ABDOMINAL PAIN UPPER [None]
  - ARTHRALGIA [None]
  - ARTHRITIS [None]
  - BURNING SENSATION [None]
  - EYE PAIN [None]
  - FACIAL PAIN [None]
  - FLUID REPLACEMENT [None]
  - GLAUCOMA [None]
  - GRANULOCYTE COUNT DECREASED [None]
  - HAEMOGLOBIN DECREASED [None]
  - HEADACHE [None]
  - HYPERCALCAEMIA [None]
  - HYPERSENSITIVITY [None]
  - ILEITIS [None]
  - IRITIS [None]
  - LEUKOCYTOSIS [None]
  - MIDDLE EAR EFFUSION [None]
  - MYALGIA [None]
  - PAIN IN EXTREMITY [None]
  - PHOTOPHOBIA [None]
  - PLEURAL EFFUSION [None]
  - PYREXIA [None]
  - READING DISORDER [None]
  - RED BLOOD CELL SEDIMENTATION RATE INCREASED [None]
  - SINUSITIS [None]
  - VISION BLURRED [None]
